FAERS Safety Report 24014195 (Version 1)
Quarter: 2024Q2

REPORT INFORMATION
  Report Type: Spontaneous
  Country: JP (occurrence: JP)
  Receive Date: 20240626
  Receipt Date: 20240626
  Transmission Date: 20240716
  Serious: Yes (Other)
  Sender: FDA-Public Use
  Company Number: JP-AMGEN-JPNSP2024097743

PATIENT
  Age: 78 Year
  Sex: Female

DRUGS (4)
  1. BLINCYTO [Suspect]
     Active Substance: BLINATUMOMAB
     Indication: B precursor type acute leukaemia
     Dosage: 5 MICROGRAM/SQ. METER, CONTINUING, DRIP INFUSION
     Route: 042
     Dates: start: 20240513, end: 20240520
  2. BLINCYTO [Suspect]
     Active Substance: BLINATUMOMAB
     Dosage: 15 MICROGRAM/SQ. METER, CONTINUING, DRIP INFUSION, DOSE INCREASED
     Route: 042
     Dates: start: 20240520, end: 20240520
  3. BLINCYTO [Suspect]
     Active Substance: BLINATUMOMAB
     Dosage: 5 MICROGRAM/SQ. METER, CONTINUING, DRIP INFUSION
     Route: 042
     Dates: start: 20240524, end: 20240604
  4. BLINCYTO [Suspect]
     Active Substance: BLINATUMOMAB
     Dosage: 15 MICROGRAM/SQ. METER, CONTINUING, DRIP INFUSION, DOSE INCREASED
     Route: 042
     Dates: start: 20240604, end: 202406

REACTIONS (4)
  - Altered state of consciousness [Recovered/Resolved]
  - B precursor type acute leukaemia [Not Recovered/Not Resolved]
  - Hypotension [Recovered/Resolved]
  - Pyrexia [Recovered/Resolved]

NARRATIVE: CASE EVENT DATE: 20240514
